FAERS Safety Report 6745895-1 (Version None)
Quarter: 2010Q2

REPORT INFORMATION
  Report Type: 
  Country: None (occurrence: None)
  Receive Date: 20100528
  Receipt Date: 20100528
  Transmission Date: 20101027
  Serious: Yes (Death)
  Sender: FDA-Public Use
  Company Number: None

PATIENT
  Age: 23 Month
  Sex: Female
  Weight: 10.8863 kg

DRUGS (3)
  1. CONCENTRATED TYLENOL INFANT DROPS [Suspect]
     Indication: ANTIPYRESIS
     Dosage: .8ML 2-3 X'S PER DAY PO
     Route: 048
     Dates: start: 20090916, end: 20090918
  2. CONCENTRATED TYLENOL INFANT DROPS [Suspect]
     Indication: MALAISE
     Dosage: .8ML 2-3 X'S PER DAY PO
     Route: 048
     Dates: start: 20090916, end: 20090918
  3. CONCENTRATED TYLENOL INFANT DROPS [Suspect]
     Indication: TEETHING
     Dosage: .8ML 2-3 X'S PER DAY PO
     Route: 048
     Dates: start: 20090916, end: 20090918

REACTIONS (1)
  - PNEUMONIA [None]
